FAERS Safety Report 15207785 (Version 1)
Quarter: 2018Q3

REPORT INFORMATION
  Report Type: Spontaneous
  Country: US (occurrence: US)
  Receive Date: 20180727
  Receipt Date: 20180727
  Transmission Date: 20181010
  Serious: No
  Sender: FDA-Public Use
  Company Number: US-ALLERGAN-1800976US

PATIENT
  Sex: Male

DRUGS (3)
  1. ANDRODERM [Suspect]
     Active Substance: TESTOSTERONE
     Indication: PRODUCT USED FOR UNKNOWN INDICATION
     Dosage: UNK
     Route: 062
  2. ASPIRIN. [Concomitant]
     Active Substance: ASPIRIN
     Indication: APPLICATION SITE VESICLES
     Dosage: 81 MG, UNK
     Route: 065
  3. ULORIC [Concomitant]
     Active Substance: FEBUXOSTAT
     Indication: GOUT
     Dosage: UNK
     Route: 065

REACTIONS (1)
  - Application site vesicles [Recovered/Resolved]
